FAERS Safety Report 15561749 (Version 4)
Quarter: 2019Q1

REPORT INFORMATION
  Report Type: Spontaneous
  Country: BR (occurrence: BR)
  Receive Date: 20181029
  Receipt Date: 20190322
  Transmission Date: 20190417
  Serious: Yes (Hospitalization, Other)
  Sender: FDA-Public Use
  Company Number: BR-GLAXOSMITHKLINE-BR2017GSK201070

PATIENT
  Sex: Female
  Weight: 56 kg

DRUGS (1)
  1. BENLYSTA [Suspect]
     Active Substance: BELIMUMAB
     Indication: SYSTEMIC LUPUS ERYTHEMATOSUS
     Dosage: 570 MG, UNK
     Dates: start: 20171106

REACTIONS (7)
  - Circumstance or information capable of leading to medication error [Not Recovered/Not Resolved]
  - Anaemia [Unknown]
  - Sinusitis [Unknown]
  - Product dose omission [Recovered/Resolved]
  - Pneumonia [Unknown]
  - Alopecia [Unknown]
  - Inappropriate schedule of product administration [Recovered/Resolved]
